FAERS Safety Report 4536946-3 (Version None)
Quarter: 2004Q4

REPORT INFORMATION
  Report Type: 
  Country: None (occurrence: None)
  Receive Date: 20041220
  Receipt Date: 20041209
  Transmission Date: 20050328
  Serious: Yes (Other)
  Sender: FDA-Public Use
  Company Number: 2004120018

PATIENT
  Age: 32 Year
  Sex: Female

DRUGS (2)
  1. ASTELIN [Suspect]
     Indication: MULTIPLE ALLERGIES
     Dosage: 2 SPRAYS (274 MCG) BID, NASALLY
     Route: 045
     Dates: start: 20041108, end: 20041208
  2. TEGRETOL [Concomitant]

REACTIONS (7)
  - ABDOMINAL PAIN [None]
  - CONDITION AGGRAVATED [None]
  - HEADACHE [None]
  - PARTIAL SEIZURES [None]
  - PYREXIA [None]
  - SELF-MEDICATION [None]
  - VOMITING [None]
